FAERS Safety Report 12446548 (Version 1)
Quarter: 2016Q2

REPORT INFORMATION
  Report Type: Spontaneous
  Country: US (occurrence: US)
  Receive Date: 20160608
  Receipt Date: 20160608
  Transmission Date: 20160815
  Serious: No
  Sender: FDA-Public Use
  Company Number: US-DRREDDYS-USA/USA/15/0047869

PATIENT
  Age: 34 Year
  Sex: Male
  Weight: 90.71 kg

DRUGS (1)
  1. FEXOFENADINE HCL [Suspect]
     Active Substance: FEXOFENADINE HYDROCHLORIDE
     Indication: PRODUCT USED FOR UNKNOWN INDICATION
     Route: 048
     Dates: start: 20150503

REACTIONS (5)
  - Sneezing [Recovered/Resolved]
  - Pollakiuria [Recovered/Resolved]
  - Asthenia [Recovered/Resolved]
  - Eye pruritus [Recovered/Resolved]
  - Nasal pruritus [Recovered/Resolved]

NARRATIVE: CASE EVENT DATE: 20150504
